FAERS Safety Report 4524894-4 (Version None)
Quarter: 2004Q4

REPORT INFORMATION
  Report Type: 
  Country: None (occurrence: None)
  Receive Date: 20041210
  Receipt Date: 20041110
  Transmission Date: 20050328
  Serious: Yes (Hospitalization)
  Sender: FDA-Public Use
  Company Number: M2004-1812

PATIENT
  Age: 28 Year
  Sex: Female

DRUGS (5)
  1. DIAZEPAM [Suspect]
     Indication: DEPRESSION
     Dosage: 4 MG DAILY
  2. FLUVOXAMINE MALEATE [Suspect]
     Indication: DEPRESSION
     Dosage: 100 MG DAILY
  3. NEBULISED SALBUTAMOL AND IPRATROPIUM [Concomitant]
  4. RANITIDINE [Concomitant]
  5. SPIRONOLACTONE [Concomitant]

REACTIONS (3)
  - ASTHMA [None]
  - DRUG INTERACTION [None]
  - RESPIRATORY FAILURE [None]
